FAERS Safety Report 10591695 (Version 1)
Quarter: 2014Q4

REPORT INFORMATION
  Report Type: Spontaneous
  Country: US (occurrence: US)
  Receive Date: 20141118
  Receipt Date: 20141118
  Transmission Date: 20150529
  Serious: Yes (Death, Other)
  Sender: FDA-Public Use
  Company Number: US-MYLANLABS-2014M1011081

PATIENT

DRUGS (18)
  1. BENADRYL [Concomitant]
     Active Substance: DIPHENHYDRAMINE HYDROCHLORIDE
     Indication: NAUSEA
     Dosage: 12.5 MG, UNK
     Route: 042
     Dates: end: 20111117
  2. ANCEF [Concomitant]
     Active Substance: CEFAZOLIN SODIUM
     Dosage: 2 MG, UNK
     Route: 042
     Dates: end: 20111117
  3. NARCAN [Concomitant]
     Active Substance: NALOXONE HYDROCHLORIDE
     Dosage: 0.4 MG, UNK
     Dates: start: 20111117, end: 20111117
  4. DILAUDID [Concomitant]
     Active Substance: HYDROMORPHONE HYDROCHLORIDE
     Dosage: 2 MG, UNK
     Dates: start: 20111117, end: 20111117
  5. ZOFRAN                             /00955301/ [Concomitant]
     Active Substance: ONDANSETRON HYDROCHLORIDE
     Indication: NAUSEA
     Dosage: 4 MG, Q4H-6H
     Route: 042
  6. NORMODYNE [Concomitant]
     Active Substance: LABETALOL HYDROCHLORIDE
     Dosage: 5 - 10 MG, UNK
  7. VALIUM [Concomitant]
     Active Substance: DIAZEPAM
     Dosage: 5 MG, UNK
     Dates: start: 20111118, end: 20111119
  8. ARIXTRA [Suspect]
     Active Substance: FONDAPARINUX SODIUM
     Indication: PRODUCT USED FOR UNKNOWN INDICATION
     Dosage: 2.5MG, ONCE
     Route: 058
     Dates: start: 20111117, end: 20111117
  9. PRINIVIL [Concomitant]
     Active Substance: LISINOPRIL
     Indication: HYPERTENSION
     Dosage: 20 MG, UNK
     Dates: end: 20111118
  10. PEPCID                             /00305201/ [Concomitant]
     Dosage: 20 MG, BID
  11. SALBUTAMOL [Concomitant]
     Active Substance: ALBUTEROL
  12. AMIODARONE [Concomitant]
     Active Substance: AMIODARONE
  13. NEXIUM [Concomitant]
     Active Substance: ESOMEPRAZOLE MAGNESIUM
     Dosage: 40 MG, BID
     Route: 042
  14. VERSED [Concomitant]
     Active Substance: MIDAZOLAM HYDROCHLORIDE
     Indication: ANXIETY
     Dosage: 1-2 MG, 1 IN 10 MIN
     Route: 042
     Dates: end: 20111117
  15. DECADRON [Concomitant]
     Active Substance: DEXAMETHASONE
     Dosage: 10 MG, UNK
     Dates: start: 20111117, end: 20111117
  16. TORADOL [Concomitant]
     Active Substance: KETOROLAC TROMETHAMINE
     Dosage: 30 MG, UNK, IN 6 HOUR
     Dates: end: 20111118
  17. MORPHINE [Concomitant]
     Active Substance: MORPHINE
  18. LORTAB [Concomitant]
     Active Substance: ACETAMINOPHEN\HYDROCODONE BITARTRATE
     Indication: PAIN
     Dosage: 15 ML, Q4H-6H
     Dates: end: 20111119

REACTIONS (14)
  - Gastrointestinal haemorrhage [None]
  - Chest pain [None]
  - Haemorrhage [Fatal]
  - Haematemesis [Unknown]
  - Hypoaesthesia [None]
  - Sudden cardiac death [None]
  - Urine output decreased [None]
  - Arrhythmia [Fatal]
  - Sepsis [None]
  - Anastomotic haemorrhage [None]
  - Medication error [Unknown]
  - Dizziness [None]
  - Tachycardia [None]
  - Cardio-respiratory arrest [None]

NARRATIVE: CASE EVENT DATE: 20111118
